FAERS Safety Report 6380522-7 (Version None)
Quarter: 2009Q3

REPORT INFORMATION
  Report Type: 
  Country: None (occurrence: None)
  Receive Date: 20090924
  Receipt Date: 20090911
  Transmission Date: 20100115
  Serious: Yes (Hospitalization)
  Sender: FDA-Public Use
  Company Number: 20090911VANCO1132

PATIENT
  Age: 38 Year
  Sex: Male

DRUGS (1)
  1. VANCOMYCIN [Suspect]
     Indication: CLOSTRIDIUM DIFFICILE COLITIS
     Dosage: ORAL

REACTIONS (6)
  - ABDOMINAL DISTENSION [None]
  - BLOOD PRESSURE DIASTOLIC DECREASED [None]
  - CLOSTRIDIAL INFECTION [None]
  - HAEMOGLOBIN DECREASED [None]
  - MEGACOLON [None]
  - PLATELET COUNT DECREASED [None]
